FAERS Safety Report 6275354-4 (Version None)
Quarter: 2009Q3

REPORT INFORMATION
  Report Type: 
  Country: None (occurrence: None)
  Receive Date: 20090721
  Receipt Date: 20090715
  Transmission Date: 20100115
  Serious: Yes (Other)
  Sender: FDA-Public Use
  Company Number: JP-AVENTIS-200911999JP

PATIENT
  Age: 54 Year
  Sex: Female

DRUGS (3)
  1. FUROSEMIDE [Suspect]
     Dates: start: 20080101
  2. SPIRONOLACTONE [Suspect]
     Dates: start: 20080101
  3. UNKNOWN DRUG [Concomitant]

REACTIONS (1)
  - HENOCH-SCHONLEIN PURPURA [None]
